FAERS Safety Report 6130098-4 (Version None)
Quarter: 2009Q1

REPORT INFORMATION
  Report Type: 
  Country: None (occurrence: None)
  Receive Date: 20090324
  Receipt Date: 20090318
  Transmission Date: 20090719
  Serious: Yes (Death)
  Sender: FDA-Public Use
  Company Number: RU-BRISTOL-MYERS SQUIBB COMPANY-14465017

PATIENT
  Age: 54 Year
  Sex: Male

DRUGS (8)
  1. CARBOPLATIN [Suspect]
     Indication: NON-SMALL CELL LUNG CANCER
     Dosage: LAST DOSE PRIOR TO ONSET OF EVENT RECEIVED ON 10-DEC-08
     Route: 042
     Dates: start: 20081027, end: 20081027
  2. TAXOL [Suspect]
     Indication: NON-SMALL CELL LUNG CANCER
     Dosage: LAST DOSE PRIOR TO ONSET OF EVENT RECEIVED ON 10-DEC-08
     Route: 042
     Dates: start: 20081027, end: 20081027
  3. DIPHENHYDRAMINE HCL [Concomitant]
  4. ONDANSETRON [Concomitant]
  5. DEXAMETHASONE [Concomitant]
  6. FAMOTIDINE [Concomitant]
  7. ATROPINE [Concomitant]
  8. LIDOCAINE [Concomitant]

REACTIONS (1)
  - GASTROINTESTINAL HAEMORRHAGE [None]
